FAERS Safety Report 5194198-8 (Version None)
Quarter: 2006Q4

REPORT INFORMATION
  Report Type: 
  Country: None (occurrence: None)
  Receive Date: 20061228
  Receipt Date: 20061211
  Transmission Date: 20070319
  Serious: Yes (Death)
  Sender: FDA-Public Use
  Company Number: 2006PK02570

PATIENT
  Age: 40 Year
  Sex: Female
  Weight: 95 kg

DRUGS (6)
  1. SEROQUEL [Suspect]
     Indication: PSYCHOTIC DISORDER
     Route: 048
     Dates: start: 20060504, end: 20060504
  2. SEROQUEL [Suspect]
     Route: 048
     Dates: start: 20060505, end: 20060505
  3. SEROQUEL [Suspect]
     Route: 048
     Dates: start: 20060506, end: 20060506
  4. SEROQUEL [Suspect]
     Route: 048
     Dates: start: 20060507, end: 20060507
  5. SEROQUEL [Suspect]
     Route: 048
     Dates: start: 20060508, end: 20060701
  6. ELTROXINE [Concomitant]

REACTIONS (1)
  - PULMONARY EMBOLISM [None]
